FAERS Safety Report 10020052 (Version 3)
Quarter: 2014Q2

REPORT INFORMATION
  Report Type: Report from Study
  Country: US (occurrence: US)
  Receive Date: 20140318
  Receipt Date: 20140424
  Transmission Date: 20141212
  Serious: Yes (Other)
  Sender: FDA-Public Use
  Company Number: PHEH2014US005158

PATIENT
  Age: 47 Year
  Sex: Female

DRUGS (21)
  1. MYFORTIC [Suspect]
     Dosage: 180 MG, BID
     Route: 048
  2. MYFORTIC [Suspect]
     Dosage: 320 MG, BID
     Route: 048
  3. MYFORTIC [Suspect]
     Dosage: 540 MG, BID (TWICE A DAY)
     Route: 048
  4. HECORIA [Suspect]
     Dosage: 0.5 MG, (3 CAPSULES IN AM AND 2 CAPSULES IN PM)
     Route: 048
  5. PROGRAFT [Concomitant]
     Dosage: UNK UKN, UNK
  6. NEURONTIN [Concomitant]
     Dosage: UNK UKN, UNK
  7. CLONIDINE [Concomitant]
     Dosage: UNK UKN, UNK
  8. AMLODIPINE [Concomitant]
     Dosage: UNK UKN, UNK
  9. METOPROLOL [Concomitant]
     Dosage: UNK UKN, UNK
  10. SYNTHROID [Concomitant]
     Dosage: UNK UKN, UNK
  11. EFFEXOR [Concomitant]
     Dosage: UNK UKN, UNK
  12. FOSAMAX [Concomitant]
     Dosage: UNK UKN, UNK
  13. PREDNISONE [Concomitant]
     Dosage: 5 MG, QD
  14. BABY ASPIRIN [Concomitant]
     Dosage: UNK UKN, UNK
  15. PROTONIX [Concomitant]
     Dosage: UNK UKN, UNK
  16. CITRACAL [Concomitant]
     Dosage: UNK UKN, UNK
  17. CALCITRIOL [Concomitant]
     Dosage: UNK UKN, UNK
  18. VITAMIN D [Concomitant]
     Dosage: UNK UKN, UNK
  19. FERROUS GLUCONATE [Concomitant]
     Dosage: UNK UKN, UNK
  20. LIPITOR [Concomitant]
     Dosage: UNK UKN, UNK
  21. DEPAKOTE [Concomitant]
     Dosage: UNK UKN, UNK

REACTIONS (7)
  - Fracture [Unknown]
  - Upper limb fracture [Unknown]
  - Humerus fracture [Unknown]
  - Fracture delayed union [Unknown]
  - Fall [Unknown]
  - Traumatic fracture [Unknown]
  - Asthenia [Unknown]
